FAERS Safety Report 20404058 (Version 1)
Quarter: 2022Q1

REPORT INFORMATION
  Report Type: Spontaneous
  Country: DK (occurrence: DK)
  Receive Date: 20220131
  Receipt Date: 20220131
  Transmission Date: 20220423
  Serious: Yes (Death, Other)
  Sender: FDA-Public Use
  Company Number: None

PATIENT
  Age: 73 Year
  Sex: Female

DRUGS (4)
  1. ELIQUIS [Suspect]
     Active Substance: APIXABAN
     Indication: Thrombosis prophylaxis
     Dosage: 2.5 MILLIGRAM DAILY
     Route: 048
     Dates: start: 20200505, end: 202006
  2. ELIQUIS [Suspect]
     Active Substance: APIXABAN
     Dosage: 5 MILLIGRAM, BID
     Route: 048
     Dates: start: 202006
  3. CLOPIDOGREL [Suspect]
     Active Substance: CLOPIDOGREL BISULFATE
     Indication: Thrombosis prophylaxis
     Dosage: DURING A KAG PROCEDURE THE PATIENT WAS LOADED WITH UNKNOWN DOSE
     Route: 048
     Dates: start: 20200724
  4. ASPIRIN [Suspect]
     Active Substance: ASPIRIN
     Indication: Thrombosis prophylaxis
     Dosage: DURING A KAG PROCEDURE THE PATIENT WAS LOADED WITH UNKNOWN DOSE
     Route: 065
     Dates: start: 20200724, end: 20200724

REACTIONS (6)
  - Cerebral haemorrhage [Fatal]
  - Nausea [Fatal]
  - Headache [Fatal]
  - Cerebrovascular accident [Not Recovered/Not Resolved]
  - Coronary artery occlusion [Not Recovered/Not Resolved]
  - Off label use [Unknown]

NARRATIVE: CASE EVENT DATE: 20200505
